FAERS Safety Report 4810566-5 (Version None)
Quarter: 2005Q4

REPORT INFORMATION
  Report Type: 
  Country: None (occurrence: None)
  Receive Date: 20051025
  Receipt Date: 20051025
  Transmission Date: 20060501
  Serious: No
  Sender: FDA-Public Use
  Company Number: None

PATIENT
  Sex: Male
  Weight: 70.3075 kg

DRUGS (1)
  1. PROTONIX [Suspect]
     Indication: GASTROOESOPHAGEAL REFLUX DISEASE
     Dosage: 40 MGM 1 QPM PO
     Route: 048
     Dates: start: 20051020, end: 20051025

REACTIONS (3)
  - DYSGEUSIA [None]
  - GLOSSODYNIA [None]
  - THROAT IRRITATION [None]
